FAERS Safety Report 7414259-X (Version None)
Quarter: 2011Q2

REPORT INFORMATION
  Report Type: 
  Country: None (occurrence: None)
  Receive Date: 20110411
  Receipt Date: 20110411
  Transmission Date: 20111010
  Serious: No
  Sender: FDA-Public Use
  Company Number: None

PATIENT
  Age: 51 Year
  Sex: Female

DRUGS (2)
  1. NITROFURANTOIN [Suspect]
     Dates: start: 20100212, end: 20100215
  2. NITROFURANTOIN [Suspect]
     Dates: start: 20090911, end: 20090914

REACTIONS (14)
  - CHOLESTASIS [None]
  - LEUKOCYTOSIS [None]
  - PYREXIA [None]
  - CHROMATURIA [None]
  - BACTERAEMIA [None]
  - URINARY TRACT INFECTION [None]
  - LIVER DISORDER [None]
  - PYELONEPHRITIS [None]
  - ASPARTATE AMINOTRANSFERASE INCREASED [None]
  - ALANINE AMINOTRANSFERASE INCREASED [None]
  - BLOOD ALKALINE PHOSPHATASE INCREASED [None]
  - BLOOD BILIRUBIN INCREASED [None]
  - CHILLS [None]
  - JAUNDICE [None]
